FAERS Safety Report 20659117 (Version 1)
Quarter: 2022Q1

REPORT INFORMATION
  Report Type: Spontaneous
  Country: US (occurrence: None)
  Receive Date: 20220331
  Receipt Date: 20220331
  Transmission Date: 20220423
  Serious: Yes (Other)
  Sender: FDA-Public Use
  Company Number: 2022A125137

PATIENT
  Age: 648 Month
  Sex: Female
  Weight: 75.8 kg

DRUGS (2)
  1. LYNPARZA [Suspect]
     Active Substance: OLAPARIB
     Indication: Leiomyosarcoma
     Dosage: 300MG EACH MORNING AND 600 MG EACH NIGHT
     Route: 048
     Dates: start: 202006, end: 202202
  2. LYNPARZA [Suspect]
     Active Substance: OLAPARIB
     Indication: Leiomyosarcoma
     Dosage: 100 MG IN THE MORNING AND 300 MG AT NIGHT.
     Route: 048

REACTIONS (2)
  - Haemoglobin abnormal [Recovering/Resolving]
  - Off label use [Unknown]

NARRATIVE: CASE EVENT DATE: 20200601
